FAERS Safety Report 10494637 (Version 4)
Quarter: 2015Q2

REPORT INFORMATION
  Report Type: Spontaneous
  Country: TH (occurrence: None)
  Receive Date: 20141001
  Receipt Date: 20150430
  Transmission Date: 20150821
  Serious: Yes (Other)
  Sender: FDA-Public Use
  Company Number: 2014TH005751

PATIENT
  Age: 73 Year
  Sex: Male
  Weight: 56 kg

DRUGS (4)
  1. ELIGARD [Suspect]
     Active Substance: LEUPROLIDE ACETATE
     Indication: PROSTATE CANCER
     Dosage: 22.5 MG, Q3MONTHS, SUBCUTANEOUS
     Route: 058
     Dates: start: 20131219, end: 20140918
  2. ROXITHROMYCIN [Concomitant]
     Active Substance: ROXITHROMYCIN
  3. ARCOXIA (ETORICOXIB) [Concomitant]
  4. LORATADINE. [Concomitant]
     Active Substance: LORATADINE

REACTIONS (29)
  - Arthralgia [None]
  - Injection site pain [None]
  - Hypertension [None]
  - Spondyloarthropathy [None]
  - Urinary retention [None]
  - Back pain [None]
  - Weight increased [None]
  - Visual impairment [None]
  - Dry mouth [None]
  - Fatigue [None]
  - Paraesthesia [None]
  - Bone pain [None]
  - Malaise [None]
  - Nausea [None]
  - Myalgia [None]
  - Pain [None]
  - Nocturia [None]
  - Tenderness [None]
  - Pain in extremity [None]
  - Eructation [None]
  - Pollakiuria [None]
  - Oedema [None]
  - Dyspnoea [None]
  - Rhinorrhoea [None]
  - Oliguria [None]
  - Dizziness [None]
  - Hyperhidrosis [None]
  - Dyspepsia [None]
  - Flatulence [None]

NARRATIVE: CASE EVENT DATE: 20140327
